FAERS Safety Report 12670814 (Version 2)
Quarter: 2017Q2

REPORT INFORMATION
  Report Type: Spontaneous
  Country: US (occurrence: US)
  Receive Date: 20160822
  Receipt Date: 20170407
  Transmission Date: 20170830
  Serious: No
  Sender: FDA-Public Use
  Company Number: US-JAZZ-2016-US-006254

PATIENT
  Age: 43 Year
  Sex: Female

DRUGS (28)
  1. XYREM [Suspect]
     Active Substance: SODIUM OXYBATE
     Dosage: 3.25 G, BID
     Route: 048
     Dates: start: 201503
  2. PROVIGIL [Concomitant]
     Active Substance: MODAFINIL
  3. TRAMADOL HCL [Concomitant]
     Active Substance: TRAMADOL HYDROCHLORIDE
  4. MUCINEX [Concomitant]
     Active Substance: GUAIFENESIN
  5. XYREM [Suspect]
     Active Substance: SODIUM OXYBATE
     Indication: NARCOLEPSY
     Dosage: 2.25 G, BID
     Route: 048
     Dates: start: 200903, end: 2009
  6. XYREM [Suspect]
     Active Substance: SODIUM OXYBATE
     Dosage: DOSE ADJUSTMENTS
     Route: 048
  7. ISOSORBIDE. [Concomitant]
     Active Substance: ISOSORBIDE
  8. NIACIN. [Concomitant]
     Active Substance: NIACIN
  9. SPIRONOLACTONE. [Concomitant]
     Active Substance: SPIRONOLACTONE
  10. TIZANIDINE HCL [Concomitant]
     Active Substance: TIZANIDINE HYDROCHLORIDE
  11. COENZYME Q10 [Concomitant]
     Active Substance: UBIDECARENONE
  12. CRESTOR [Concomitant]
     Active Substance: ROSUVASTATIN CALCIUM
  13. ASPIRIN. [Concomitant]
     Active Substance: ASPIRIN
  14. KAPIDEX [Concomitant]
     Active Substance: DEXLANSOPRAZOLE
  15. METOPROLOL SUCCINATE. [Concomitant]
     Active Substance: METOPROLOL SUCCINATE
  16. MULTIVITAMINS [Concomitant]
     Active Substance: VITAMINS
  17. PROTONIX [Concomitant]
     Active Substance: PANTOPRAZOLE SODIUM
  18. VITAMIN D3 [Concomitant]
     Active Substance: CHOLECALCIFEROL
  19. DARVOCET [Concomitant]
     Active Substance: ACETAMINOPHEN\PROPOXYPHENE HYDROCHLORIDE
  20. METOPROLOL TARTRATE. [Concomitant]
     Active Substance: METOPROLOL TARTRATE
  21. NITROSTAT [Concomitant]
     Active Substance: NITROGLYCERIN
  22. OMEGA 3 [Concomitant]
     Active Substance: OMEGA-3 FATTY ACIDS
  23. RANEXA [Concomitant]
     Active Substance: RANOLAZINE
  24. ZETIA [Concomitant]
     Active Substance: EZETIMIBE
  25. VITAMIN D [Concomitant]
     Active Substance: CHOLECALCIFEROL
  26. DYAZIDE [Concomitant]
     Active Substance: HYDROCHLOROTHIAZIDE\TRIAMTERENE
  27. VITAMIN B COMPLEX [Concomitant]
     Active Substance: CYANOCOBALAMIN\DEXPANTHENOL\NIACINAMIDE\PYRIDOXINE HYDROCHLORIDE\RIBOFLAVIN 5^-PHOSPHATE SODIUM\THIAMINE HYDROCHLORIDE\VITAMIN B COMPLEX
  28. CLONAZEPAM. [Concomitant]
     Active Substance: CLONAZEPAM

REACTIONS (1)
  - Palpitations [Recovering/Resolving]

NARRATIVE: CASE EVENT DATE: 201508
